FAERS Safety Report 21723405 (Version 2)
Quarter: 2022Q4

REPORT INFORMATION
  Report Type: Spontaneous
  Country: DE (occurrence: DE)
  Receive Date: 20221213
  Receipt Date: 20221227
  Transmission Date: 20230113
  Serious: Yes (Other)
  Sender: FDA-Public Use
  Company Number: DE-Rhythm Pharmaceuticals, Inc.-2022RHM000178

PATIENT
  Age: 7 Year
  Sex: Female

DRUGS (7)
  1. IMCIVREE [Suspect]
     Active Substance: SETMELANOTIDE
     Indication: Gene mutation
     Route: 065
     Dates: start: 20220706, end: 20220721
  2. IMCIVREE [Suspect]
     Active Substance: SETMELANOTIDE
     Route: 065
     Dates: start: 20220722
  3. IMCIVREE [Suspect]
     Active Substance: SETMELANOTIDE
     Dosage: 0.6 ML
     Route: 065
     Dates: start: 20220914, end: 20220914
  4. IMCIVREE [Suspect]
     Active Substance: SETMELANOTIDE
     Route: 065
     Dates: start: 20220916, end: 20221109
  5. IMCIVREE [Suspect]
     Active Substance: SETMELANOTIDE
     Route: 065
     Dates: start: 20221205
  6. VITAMIN D [Concomitant]
     Active Substance: VITAMIN D NOS
     Indication: Vitamin D deficiency
     Dosage: 1000 IE/DAY
     Route: 065
  7. FOLIC ACID [Concomitant]
     Active Substance: FOLIC ACID
     Indication: Folate deficiency
     Route: 065

REACTIONS (11)
  - Hallucination, auditory [Not Recovered/Not Resolved]
  - Stress [Recovering/Resolving]
  - Aggression [Recovering/Resolving]
  - Suicidal ideation [Recovering/Resolving]
  - Blood pressure fluctuation [Recovered/Resolved]
  - Incorrect dose administered [Recovered/Resolved]
  - Hypophagia [Recovered/Resolved]
  - Diarrhoea [Recovered/Resolved]
  - Dizziness [Recovered/Resolved]
  - Headache [Recovered/Resolved]
  - Abdominal pain [Recovered/Resolved]

NARRATIVE: CASE EVENT DATE: 20220914
